FAERS Safety Report 10073634 (Version 1)
Quarter: 2014Q2

REPORT INFORMATION
  Report Type: Spontaneous
  Country: JP (occurrence: JP)
  Receive Date: 20140411
  Receipt Date: 20140411
  Transmission Date: 20141212
  Serious: Yes (Hospitalization, Other)
  Sender: FDA-Public Use
  Company Number: JP-WATSON-2014-07000

PATIENT
  Age: 20 Year
  Sex: Female

DRUGS (2)
  1. MIXED AMPHETAMINES (AELLC) [Suspect]
     Indication: PRODUCT USED FOR UNKNOWN INDICATION
     Dosage: UNK
     Route: 065
  2. METAMFETAMINE [Suspect]
     Indication: PRODUCT USED FOR UNKNOWN INDICATION
     Dosage: UNK
     Route: 065

REACTIONS (13)
  - Loss of consciousness [Recovering/Resolving]
  - Hyperhidrosis [Unknown]
  - Dyspnoea [Unknown]
  - Tachycardia [Unknown]
  - Mydriasis [Unknown]
  - Dehydration [Unknown]
  - Vomiting [Unknown]
  - Nausea [Unknown]
  - Psychomotor hyperactivity [Unknown]
  - Chest pain [Unknown]
  - Abdominal pain [Unknown]
  - Hypoaesthesia [Unknown]
  - Toxicity to various agents [Unknown]
